FAERS Safety Report 18512945 (Version 2)
Quarter: 2020Q4

REPORT INFORMATION
  Report Type: Spontaneous
  Country: GB (occurrence: GB)
  Receive Date: 20201117
  Receipt Date: 20201124
  Transmission Date: 20210114
  Serious: Yes (Other)
  Sender: FDA-Public Use
  Company Number: GB-MYLANLABS-2020M1092368

PATIENT
  Age: 51 Year
  Sex: Male
  Weight: 78.7 kg

DRUGS (7)
  1. TEMOZOLOMIDE. [Suspect]
     Active Substance: TEMOZOLOMIDE
     Indication: GLIOBLASTOMA
     Dosage: UNK (FOR A 6 WEEK PERIOD INITIALLY)
     Route: 048
  2. PRIADEL                            /00033702/ [Concomitant]
     Active Substance: LITHIUM CARBONATE
     Indication: AFFECTIVE DISORDER
     Dosage: 400 MILLIGRAM AT NIGHT
     Route: 048
  3. AMISULPRIDE [Concomitant]
     Active Substance: AMISULPRIDE
     Indication: SCHIZOPHRENIA
     Dosage: 200 MILLIGRAM, MANE
     Route: 048
  4. AMISULPRIDE [Concomitant]
     Active Substance: AMISULPRIDE
     Dosage: 400 MILLIGRAM AT NIGHT
     Route: 048
  5. OMEPRAZOLE. [Concomitant]
     Active Substance: OMEPRAZOLE
     Indication: GASTRITIS
     Dosage: 40 MILLIGRAM IN THE MORNING
     Route: 048
  6. CLOZARIL [Suspect]
     Active Substance: CLOZAPINE
     Indication: SCHIZOPHRENIA
     Dosage: 225 MILLIGRAM, PM
     Route: 048
     Dates: start: 20111020
  7. LISINOPRIL. [Concomitant]
     Active Substance: LISINOPRIL
     Indication: HYPERTENSION
     Dosage: 20 MILLIGRAM IN THE MORNING
     Route: 048

REACTIONS (1)
  - Contraindicated product prescribed [Unknown]

NARRATIVE: CASE EVENT DATE: 20201102
